FAERS Safety Report 5313818-8 (Version None)
Quarter: 2007Q2

REPORT INFORMATION
  Report Type: 
  Country: None (occurrence: None)
  Receive Date: 20070501
  Receipt Date: 20070427
  Transmission Date: 20071010
  Serious: Yes (Hospitalization)
  Sender: FDA-Public Use
  Company Number: 393029

PATIENT
  Age: 76 Year
  Sex: Male

DRUGS (6)
  1. COREG [Suspect]
     Dosage: 3.25MG TWICE PER DAY
     Route: 048
     Dates: start: 20040727
  2. PLAVIX [Concomitant]
  3. LISINOPRIL [Concomitant]
  4. PIROXICAM [Concomitant]
  5. ASPIRIN [Concomitant]
  6. ZOCOR [Concomitant]

REACTIONS (6)
  - ASTHENIA [None]
  - BACK PAIN [None]
  - BLOOD PRESSURE FLUCTUATION [None]
  - BLOOD PRESSURE INCREASED [None]
  - MUSCULOSKELETAL PAIN [None]
  - PAIN [None]
